FAERS Safety Report 4886358-8 (Version None)
Quarter: 2006Q1

REPORT INFORMATION
  Report Type: 
  Country: None (occurrence: None)
  Receive Date: 20060120
  Receipt Date: 20050718
  Transmission Date: 20060701
  Serious: Yes (Hospitalization)
  Sender: FDA-Public Use
  Company Number: US-MERCK-0507USA02893

PATIENT
  Age: 60 Year
  Sex: Male
  Weight: 85 kg

DRUGS (5)
  1. VIOXX [Suspect]
     Indication: ARTHRITIS
     Route: 048
     Dates: start: 19991119, end: 20040701
  2. PREDNISONE [Concomitant]
     Route: 065
  3. VIAGRA [Concomitant]
     Route: 065
  4. LIPITOR [Concomitant]
     Route: 065
  5. ALLEGRA [Concomitant]
     Route: 065

REACTIONS (3)
  - MUSCLE INJURY [None]
  - NEPHROLITHIASIS [None]
  - TEMPORAL ARTERITIS [None]
